FAERS Safety Report 5789679-X (Version None)
Quarter: 2008Q2

REPORT INFORMATION
  Report Type: 
  Country: None (occurrence: None)
  Receive Date: 20080626
  Receipt Date: 20080212
  Transmission Date: 20081010
  Serious: No
  Sender: FDA-Public Use
  Company Number: A0708935A

PATIENT
  Age: 50 Year
  Sex: Female

DRUGS (11)
  1. ALLI [Suspect]
  2. ESTROGEN GEL [Concomitant]
  3. SYNTHROID [Concomitant]
  4. ROLAIDS [Concomitant]
  5. LASIX [Concomitant]
  6. LORCET-HD [Concomitant]
  7. CENTRUM SILVER [Concomitant]
  8. ASCORBIC ACID [Concomitant]
  9. VITAMIN E [Concomitant]
  10. VITAMIN B [Concomitant]
  11. CHROMIUM PICOLINATE [Concomitant]

REACTIONS (2)
  - CONSTIPATION [None]
  - FLATULENCE [None]
